FAERS Safety Report 5030589-3 (Version None)
Quarter: 2006Q2

REPORT INFORMATION
  Report Type: 
  Country: None (occurrence: None)
  Receive Date: 20060614
  Receipt Date: 20060531
  Transmission Date: 20061013
  Serious: Yes (Hospitalization)
  Sender: FDA-Public Use
  Company Number: 012294

PATIENT
  Age: 64 Year
  Sex: Female

DRUGS (6)
  1. VERAPAMIL [Suspect]
     Indication: ATRIAL FIBRILLATION
     Dosage: 80 MG, THREE DAY
  2. SOTALOL HCL [Suspect]
     Indication: ATRIAL FIBRILLATION
  3. DIGOXIN [Suspect]
     Indication: ATRIAL FIBRILLATION
  4. WARFARIN SODIUM [Concomitant]
  5. CO-AMILOFRUSE (AMILORIDE HYDROCHLORIDE, FUROSEMIDE) [Concomitant]
  6. PERINDOPRIL ERUMINE [Concomitant]

REACTIONS (23)
  - ABDOMINAL PAIN [None]
  - ABDOMINAL TENDERNESS [None]
  - ATRIAL FIBRILLATION [None]
  - BLOOD POTASSIUM INCREASED [None]
  - BRADYCARDIA [None]
  - CARDIOMEGALY [None]
  - COUGH [None]
  - DEPRESSED LEVEL OF CONSCIOUSNESS [None]
  - DRUG INTERACTION [None]
  - DRUG LEVEL BELOW THERAPEUTIC [None]
  - DYSPNOEA [None]
  - GLASGOW COMA SCALE ABNORMAL [None]
  - HAEMODIALYSIS [None]
  - HEART RATE INCREASED [None]
  - HYPOTENSION [None]
  - INTERNATIONAL NORMALISED RATIO INCREASED [None]
  - LIVEDO RETICULARIS [None]
  - LIVER FUNCTION TEST ABNORMAL [None]
  - METABOLIC ACIDOSIS [None]
  - PULSE ABSENT [None]
  - RENAL FAILURE [None]
  - RESPIRATORY RATE INCREASED [None]
  - THERAPY NON-RESPONDER [None]
